FAERS Safety Report 13839420 (Version 1)
Quarter: 2017Q3

REPORT INFORMATION
  Report Type: Spontaneous
  Country: US (occurrence: US)
  Receive Date: 20170805
  Receipt Date: 20170805
  Transmission Date: 20171127
  Serious: No
  Sender: FDA-Public Use
  Company Number: None

PATIENT
  Age: 55 Year
  Sex: Male

DRUGS (32)
  1. BUSULFAN. [Suspect]
     Active Substance: BUSULFAN
     Indication: PRODUCT USED FOR UNKNOWN INDICATION
     Route: 042
     Dates: start: 20170125, end: 20170129
  2. DOCUSATE [Concomitant]
     Active Substance: DOCUSATE
  3. HYDROCORTISONE. [Concomitant]
     Active Substance: HYDROCORTISONE
  4. MAGNESIUM SULFATE. [Concomitant]
     Active Substance: MAGNESIUM SULFATE
  5. TEMAZEPAM. [Concomitant]
     Active Substance: TEMAZEPAM
  6. ACETAMINOPHEN. [Concomitant]
     Active Substance: ACETAMINOPHEN
  7. ACYCLOVIR. [Concomitant]
     Active Substance: ACYCLOVIR
  8. DEXAMETHASONE. [Concomitant]
     Active Substance: DEXAMETHASONE
  9. FLUCONAZOLE. [Concomitant]
     Active Substance: FLUCONAZOLE
  10. VITAMIN E [Concomitant]
     Active Substance: .ALPHA.-TOCOPHEROL
  11. FLUORIDE TOPICAL GEL TREATMENT [Concomitant]
     Active Substance: SODIUM FLUORIDE
  12. LEVETIRACETAM. [Concomitant]
     Active Substance: LEVETIRACETAM
  13. MUPIROCIN. [Concomitant]
     Active Substance: MUPIROCIN
  14. TACROLIMUS. [Concomitant]
     Active Substance: TACROLIMUS
  15. VANCOMYCIN POWDER 0.5G ^MYLAN^ [Concomitant]
     Active Substance: VANCOMYCIN
  16. ONDANSETRON [Concomitant]
     Active Substance: ONDANSETRON
  17. SENNA [Concomitant]
     Active Substance: SENNA LEAF\SENNOSIDES\SENNOSIDES A AND B
  18. CYCLOPHOSPHAMIDE. [Suspect]
     Active Substance: CYCLOPHOSPHAMIDE
     Route: 042
  19. EMOLLIENT CREAM [Concomitant]
  20. LOPERAMIDE [Concomitant]
     Active Substance: LOPERAMIDE
  21. METHOTREXATE. [Concomitant]
     Active Substance: METHOTREXATE
  22. SODIUM CHLORIDE NASAL SPRAY [Concomitant]
  23. OXYCODONE [Concomitant]
     Active Substance: OXYCODONE
  24. SODIUM CHLORIDE. [Concomitant]
     Active Substance: SODIUM CHLORIDE
  25. DIPHENHYDRAMINE. [Concomitant]
     Active Substance: DIPHENHYDRAMINE
  26. INSULIN ASPART [Concomitant]
     Active Substance: INSULIN ASPART
  27. LORAZAPAM [Concomitant]
     Active Substance: LORAZEPAM
  28. MESNA. [Concomitant]
     Active Substance: MESNA
  29. PROCHLORPERAZINE. [Concomitant]
     Active Substance: PROCHLORPERAZINE
  30. GLUTAMINE [Concomitant]
     Active Substance: GLUTAMINE
  31. MULTIVITAMIN [Concomitant]
     Active Substance: VITAMINS
  32. POLYETHYLENE GLYCOL 3350. [Concomitant]
     Active Substance: POLYETHYLENE GLYCOL 3350

REACTIONS (7)
  - Decreased appetite [None]
  - Nausea [None]
  - Diarrhoea [None]
  - Oral pain [None]
  - Mucosal inflammation [None]
  - Neutropenia [None]
  - Gastrooesophageal reflux disease [None]

NARRATIVE: CASE EVENT DATE: 20170203
